FAERS Safety Report 16138186 (Version 2)
Quarter: 2019Q2

REPORT INFORMATION
  Report Type: Report from Study
  Country: US (occurrence: US)
  Receive Date: 20190401
  Receipt Date: 20190408
  Transmission Date: 20190711
  Serious: Yes (Hospitalization)
  Sender: FDA-Public Use
  Company Number: US-TESAROUBC-2019-TSO01264-US

PATIENT
  Age: 35 Year
  Sex: Female

DRUGS (1)
  1. ZEJULA [Suspect]
     Active Substance: NIRAPARIB
     Indication: CERVIX CARCINOMA
     Dosage: 300 MG, PM AFTER DINNER
     Route: 065
     Dates: start: 20190105, end: 201903

REACTIONS (8)
  - Vomiting [Unknown]
  - Disease progression [Unknown]
  - Blood pressure increased [Recovered/Resolved]
  - Nausea [Unknown]
  - Hospice care [Unknown]
  - Product use in unapproved indication [Unknown]
  - Haemoglobin decreased [Unknown]
  - Pain [Unknown]

NARRATIVE: CASE EVENT DATE: 201901
